FAERS Safety Report 20902575 (Version 2)
Quarter: 2022Q2

REPORT INFORMATION
  Report Type: Report from Study
  Country: PT (occurrence: PT)
  Receive Date: 20220601
  Receipt Date: 20220613
  Transmission Date: 20220721
  Serious: Yes (Other)
  Sender: FDA-Public Use
  Company Number: PT-ABBVIE-22K-130-4416604-00

PATIENT
  Age: 63 Year
  Sex: Male

DRUGS (4)
  1. SKYRIZI [Suspect]
     Active Substance: RISANKIZUMAB-RZAA
     Indication: Psoriasis
     Dosage: LOADING DOSE 1
     Route: 058
     Dates: start: 20210804, end: 20210804
  2. SKYRIZI [Suspect]
     Active Substance: RISANKIZUMAB-RZAA
     Dosage: LOADING DOSE 2
     Route: 058
     Dates: start: 20210901, end: 20210901
  3. SKYRIZI [Suspect]
     Active Substance: RISANKIZUMAB-RZAA
     Route: 058
     Dates: start: 20211124, end: 2021
  4. SKYRIZI [Suspect]
     Active Substance: RISANKIZUMAB-RZAA
     Route: 058
     Dates: start: 2022, end: 20220218

REACTIONS (1)
  - Bladder neoplasm [Unknown]

NARRATIVE: CASE EVENT DATE: 20220401
